FAERS Safety Report 10780663 (Version 1)
Quarter: 2015Q1

REPORT INFORMATION
  Report Type: Spontaneous
  Country: US (occurrence: None)
  Receive Date: 20150209
  Receipt Date: 20150209
  Transmission Date: 20150721
  Serious: No
  Sender: FDA-Public Use
  Company Number: None

PATIENT

DRUGS (2)
  1. NEXTERONE [Suspect]
     Active Substance: AMIODARONE HYDROCHLORIDE
     Dosage: PREMIXED INJECTION, 1 GALAXY SINGLE-DOSE
  2. CARDENE [Suspect]
     Active Substance: NICARDIPINE HYDROCHLORIDE
     Dosage: PREMIXED INJECTION, 1 GALAXY SINGLE DOSE CONTAINER

REACTIONS (2)
  - Product packaging confusion [None]
  - Product label confusion [None]
